FAERS Safety Report 4627566-0 (Version None)
Quarter: 2005Q2

REPORT INFORMATION
  Report Type: 
  Country: None (occurrence: None)
  Receive Date: 20050405
  Receipt Date: 20050322
  Transmission Date: 20051028
  Serious: Yes (Death, Hospitalization)
  Sender: FDA-Public Use
  Company Number: HQWYE602031MAR05

PATIENT
  Age: 34 Year
  Sex: Male

DRUGS (4)
  1. RAPAMUNE [Suspect]
     Indication: IMMUNOSUPPRESSANT DRUG THERAPY
     Dosage: 2 MG 1X PER 1 DAY VARIABLE
  2. PREDNISONE [Concomitant]
  3. RANITIDINE [Concomitant]
  4. TACROLIMUS (TACROLIMUS) [Concomitant]

REACTIONS (5)
  - DUODENAL ULCER HAEMORRHAGE [None]
  - GASTRIC HAEMORRHAGE [None]
  - HAEMATEMESIS [None]
  - HAEMOGLOBIN DECREASED [None]
  - RENAL FAILURE [None]
